FAERS Safety Report 8823649 (Version 3)
Quarter: 2012Q4

REPORT INFORMATION
  Report Type: 
  Country: US (occurrence: US)
  Receive Date: 20121003
  Receipt Date: 20121101
  Transmission Date: 20130627
  Serious: No
  Sender: FDA-Public Use
  Company Number: US-VERTEX PHARMACEUTICAL INC.-2012-021138

PATIENT
  Age: 71 Year
  Sex: Male
  Weight: 86 kg

DRUGS (11)
  1. VX-950 [Suspect]
     Indication: HEPATITIS C
     Dosage: 750 mg, tid
     Route: 048
  2. PEGASYS [Concomitant]
     Indication: HEPATITIS C
     Dosage: 180 ?g, UNK
     Route: 058
  3. COPEGUS [Concomitant]
     Indication: HEPATITIS C
     Dosage: 1000 mg, qd
     Route: 048
  4. COPEGUS [Concomitant]
     Dosage: UNK
     Route: 048
  5. KLOR-CON M10 [Concomitant]
     Dosage: 10 mEq, UNK
     Route: 048
  6. HYDROCHLOROTHIAZIDE [Concomitant]
     Dosage: 50 mg, UNK
     Route: 048
  7. CELEBREX [Concomitant]
     Dosage: 200 mg, UNK
     Route: 048
  8. CENTRUM  SILVER [Concomitant]
     Dosage: UNK
     Route: 048
  9. LYRICA [Concomitant]
     Dosage: 50 mg, UNK
     Route: 048
  10. CODEINE SULFATE [Concomitant]
     Dosage: 30 mg, UNK
     Route: 048
  11. BENADRYL ALG     /00000402/ [Concomitant]
     Dosage: 25 mg, UNK
     Route: 048

REACTIONS (6)
  - Laboratory test abnormal [Unknown]
  - Dyspnoea exertional [Unknown]
  - Vision blurred [Unknown]
  - Pyrexia [Unknown]
  - Rash [Unknown]
  - Anaemia [Unknown]
